FAERS Safety Report 10398854 (Version 1)
Quarter: 2014Q3

REPORT INFORMATION
  Report Type: Spontaneous
  Country: US (occurrence: None)
  Receive Date: 20140818
  Receipt Date: 20140818
  Transmission Date: 20150326
  Serious: Yes (Other)
  Sender: FDA-Public Use
  Company Number: None

PATIENT
  Age: 29 Year
  Sex: Male
  Weight: 102.97 kg

DRUGS (1)
  1. CLINDAMYCIN [Suspect]
     Active Substance: CLINDAMYCIN\CLINDAMYCIN PHOSPHATE
     Indication: TOOTH INFECTION
     Dosage: 1, THREE TIMES DAILY, TAKEN BY MOUTH
     Route: 048
     Dates: start: 20140802, end: 20140815

REACTIONS (3)
  - Dyspepsia [None]
  - Odynophagia [None]
  - Chest pain [None]
